FAERS Safety Report 4806006-2 (Version None)
Quarter: 2005Q4

REPORT INFORMATION
  Report Type: 
  Country: None (occurrence: None)
  Receive Date: 20051021
  Receipt Date: 20050929
  Transmission Date: 20060501
  Serious: Yes (Hospitalization)
  Sender: FDA-Public Use
  Company Number: FR-GLAXOSMITHKLINE-B0396093A

PATIENT
  Age: 20 Year
  Sex: Male
  Weight: 75 kg

DRUGS (8)
  1. ZOVIRAX [Suspect]
     Indication: DRUG USE FOR UNKNOWN INDICATION
     Dates: start: 20050530
  2. ONDANSETRON [Suspect]
     Dates: start: 20050723, end: 20050729
  3. ENDOXAN [Suspect]
     Dosage: 3.5G PER DAY
     Route: 042
     Dates: start: 20050722, end: 20050723
  4. FLUDARA [Suspect]
     Dosage: 60MG PER DAY
     Route: 042
     Dates: start: 20050722, end: 20050725
  5. HEPARIN SODIUM [Suspect]
     Route: 042
     Dates: start: 20050530
  6. BUSULFAN [Suspect]
     Dosage: 60MG PER DAY
     Route: 042
     Dates: start: 20050531, end: 20050603
  7. CYCLOSPORINE [Suspect]
     Route: 048
     Dates: start: 20050530, end: 20050721
  8. PLITICAN [Suspect]
     Dates: start: 20050723, end: 20050804

REACTIONS (4)
  - CARDIAC FAILURE [None]
  - CARDIOMEGALY [None]
  - CONGESTIVE CARDIOMYOPATHY [None]
  - PULMONARY OEDEMA [None]
